FAERS Safety Report 26111755 (Version 1)
Quarter: 2025Q4

REPORT INFORMATION
  Report Type: Spontaneous
  Country: CN (occurrence: CN)
  Receive Date: 20251202
  Receipt Date: 20251202
  Transmission Date: 20260117
  Serious: Yes (Other)
  Sender: CSL BEHRING
  Company Number: CN-BEH-2025227728

PATIENT
  Age: 61 Year
  Sex: Male
  Weight: 77 kg

DRUGS (1)
  1. ALBUMIN HUMAN [Suspect]
     Active Substance: ALBUMIN HUMAN
     Indication: Hypoproteinaemia
     Dosage: 10 G, QD
     Route: 041
     Dates: start: 20251101, end: 20251101

REACTIONS (7)
  - Hypersensitivity [Recovering/Resolving]
  - Chest discomfort [Recovering/Resolving]
  - Dyspnoea [Recovering/Resolving]
  - Throat tightness [Recovering/Resolving]
  - Palpitations [Recovering/Resolving]
  - Respiratory rate increased [Unknown]
  - Oxygen saturation decreased [Unknown]

NARRATIVE: CASE EVENT DATE: 20251101
